FAERS Safety Report 16866760 (Version 1)
Quarter: 2019Q3

REPORT INFORMATION
  Report Type: Spontaneous
  Country: US (occurrence: US)
  Receive Date: 20190805
  Receipt Date: 20190805
  Transmission Date: 20191005
  Serious: Yes (Hospitalization)
  Sender: FDA-Public Use
  Company Number: None

PATIENT
  Age: 74 Year
  Sex: Male

DRUGS (1)
  1. APIXABAN [Suspect]
     Active Substance: APIXABAN
     Indication: ATRIAL FIBRILLATION
     Route: 048
     Dates: start: 20190223

REACTIONS (6)
  - Gastrointestinal haemorrhage [None]
  - Inflammation [None]
  - Gastric haemorrhage [None]
  - Gastric polyps [None]
  - Faeces discoloured [None]
  - Haemoglobin decreased [None]

NARRATIVE: CASE EVENT DATE: 20190725
